FAERS Safety Report 4472934-3 (Version None)
Quarter: 2004Q4

REPORT INFORMATION
  Report Type: 
  Country: None (occurrence: None)
  Receive Date: 20041013
  Receipt Date: 20041005
  Transmission Date: 20050328
  Serious: Yes (Disabling)
  Sender: FDA-Public Use
  Company Number: CA-MERCK-0410CAN00155

PATIENT
  Age: 70 Year
  Sex: Female

DRUGS (2)
  1. VIOXX [Suspect]
     Indication: RHEUMATOID ARTHRITIS
     Route: 048
     Dates: start: 20010101, end: 20011001
  2. VIOXX [Suspect]
     Route: 048
     Dates: end: 20041001

REACTIONS (2)
  - CEREBROVASCULAR ACCIDENT [None]
  - FLUSHING [None]
